FAERS Safety Report 12179733 (Version 1)
Quarter: 2016Q1

REPORT INFORMATION
  Report Type: Spontaneous
  Country: NL (occurrence: NL)
  Receive Date: 20160315
  Receipt Date: 20160315
  Transmission Date: 20160526
  Serious: Yes (Life-Threatening)
  Sender: FDA-Public Use
  Company Number: NL-ASTRAZENECA-2016SE23340

PATIENT
  Sex: Female

DRUGS (3)
  1. ZOLADEX [Suspect]
     Active Substance: GOSERELIN ACETATE
     Route: 058
     Dates: start: 20160206
  2. OXAZEPAM. [Concomitant]
     Active Substance: OXAZEPAM
  3. ZOLADEX [Suspect]
     Active Substance: GOSERELIN ACETATE
     Route: 058

REACTIONS (5)
  - Menorrhagia [Unknown]
  - Weight decreased [Unknown]
  - Insomnia [Unknown]
  - Suicide attempt [Unknown]
  - Product use issue [Unknown]
